FAERS Safety Report 13064600 (Version 1)
Quarter: 2016Q4

REPORT INFORMATION
  Report Type: Spontaneous
  Country: US (occurrence: US)
  Receive Date: 20161225
  Receipt Date: 20161225
  Transmission Date: 20170207
  Serious: Yes (Other)
  Sender: FDA-Public Use
  Company Number: None

PATIENT
  Age: 44 Year
  Sex: Female
  Weight: 55.8 kg

DRUGS (2)
  1. PAROXETINE. [Concomitant]
     Active Substance: PAROXETINE
  2. MAXIMUM STRENGTH HYDROCORTISONE [Suspect]
     Active Substance: HYDROCORTISONE
     Indication: DERMATITIS
     Route: 061
     Dates: start: 20161221, end: 20161225

REACTIONS (3)
  - Dermatitis contact [None]
  - Product label issue [None]
  - Condition aggravated [None]

NARRATIVE: CASE EVENT DATE: 20161221
